FAERS Safety Report 8111557-1 (Version None)
Quarter: 2012Q1

REPORT INFORMATION
  Report Type: 
  Country: None (occurrence: None)
  Receive Date: 20120202
  Receipt Date: 20120202
  Transmission Date: 20120608
  Serious: Yes (Other)
  Sender: FDA-Public Use
  Company Number: None

PATIENT
  Sex: Male
  Weight: 101.4 kg

DRUGS (15)
  1. LANTUS [Concomitant]
  2. METOLAZONE [Concomitant]
  3. FLUCONAZOLE [Concomitant]
  4. FUROSEMIDE [Concomitant]
  5. HEPARIN [Concomitant]
  6. AMLODIPINE [Concomitant]
  7. ASPIRIN [Concomitant]
  8. PLAVIX [Concomitant]
  9. PROTONIX [Concomitant]
  10. HUMALOG [Concomitant]
  11. CEFEPIME [Suspect]
     Indication: CULTURE WOUND POSITIVE
     Dosage: 2 GRAMS Q8H IV; 2 GRAMS Q12H IV
     Route: 042
     Dates: start: 20120120, end: 20120126
  12. CEFEPIME [Suspect]
     Indication: PSEUDOMONAS TEST POSITIVE
     Dosage: 2 GRAMS Q8H IV; 2 GRAMS Q12H IV
     Route: 042
     Dates: start: 20120120, end: 20120126
  13. GABAPENTIN [Concomitant]
  14. CHLOROTHIAZIDE [Concomitant]
  15. METOPROLOL [Concomitant]

REACTIONS (1)
  - MYOCLONUS [None]
